FAERS Safety Report 8429240-1 (Version None)
Quarter: 2012Q2

REPORT INFORMATION
  Report Type: 
  Country: None (occurrence: None)
  Receive Date: 20120612
  Receipt Date: 20120604
  Transmission Date: 20120825
  Serious: Yes (Hospitalization)
  Sender: FDA-Public Use
  Company Number: PHHY2012FR048798

PATIENT
  Sex: Female

DRUGS (7)
  1. AZILECT [Concomitant]
  2. OMEPRAZOLE [Concomitant]
  3. MIRTAZAPINE [Concomitant]
  4. STALEVO 100 [Suspect]
     Indication: PARKINSON'S DISEASE
     Dosage: 3 DF (200/150/37.5 MG), DAILY
     Dates: start: 20120217, end: 20120306
  5. DUSPATALIN [Concomitant]
  6. TRANXENE [Concomitant]
  7. LUMIGAN [Concomitant]

REACTIONS (6)
  - ELECTROCARDIOGRAM ABNORMAL [None]
  - GASTROINTESTINAL DISORDER [None]
  - DIARRHOEA [None]
  - NAUSEA [None]
  - DECREASED APPETITE [None]
  - HYPOKALAEMIA [None]
